FAERS Safety Report 10413200 (Version 1)
Quarter: 2014Q3

REPORT INFORMATION
  Report Type: Spontaneous
  Country: NZ (occurrence: NZ)
  Receive Date: 20140827
  Receipt Date: 20140827
  Transmission Date: 20150326
  Serious: Yes (Hospitalization)
  Sender: FDA-Public Use
  Company Number: NZ-GE HEALTHCARE MEDICAL DIAGNOSTICS-OMPQ-PR-1408S-1003

PATIENT
  Age: 30 Year
  Sex: Male

DRUGS (2)
  1. OMNIPAQUE [Suspect]
     Active Substance: IOHEXOL
     Indication: TESTIS CANCER
     Route: 042
     Dates: start: 20140813, end: 20140813
  2. OMNIPAQUE [Suspect]
     Active Substance: IOHEXOL
     Indication: DIAGNOSTIC PROCEDURE

REACTIONS (4)
  - Face oedema [Recovered/Resolved]
  - Urticaria [Recovered/Resolved]
  - Laryngeal oedema [Recovered/Resolved]
  - Shock [Recovered/Resolved]

NARRATIVE: CASE EVENT DATE: 20140813
